FAERS Safety Report 12996783 (Version 2)
Quarter: 2016Q4

REPORT INFORMATION
  Report Type: Spontaneous
  Country: JP (occurrence: JP)
  Receive Date: 20161204
  Receipt Date: 20161220
  Transmission Date: 20170207
  Serious: Yes (Death, Life-Threatening)
  Sender: FDA-Public Use
  Company Number: JP-ROCHE-1862577

PATIENT
  Age: 70 Year
  Sex: Female

DRUGS (2)
  1. RITUXAN [Suspect]
     Active Substance: RITUXIMAB
     Indication: MICROSCOPIC POLYANGIITIS
     Route: 042
     Dates: start: 20151204, end: 20151211
  2. METHYLPREDNISOLONE. [Concomitant]
     Active Substance: METHYLPREDNISOLONE
     Indication: MICROSCOPIC POLYANGIITIS
     Route: 042
     Dates: start: 20151126

REACTIONS (6)
  - Disseminated intravascular coagulation [Unknown]
  - Sepsis [Unknown]
  - Acute kidney injury [Unknown]
  - Pneumonia aspiration [Fatal]
  - Enteritis infectious [Recovering/Resolving]
  - Altered state of consciousness [Recovering/Resolving]
